FAERS Safety Report 5650583-9 (Version None)
Quarter: 2008Q1

REPORT INFORMATION
  Report Type: 
  Country: None (occurrence: None)
  Receive Date: 20080303
  Receipt Date: 20080225
  Transmission Date: 20080703
  Serious: Yes (Hospitalization)
  Sender: FDA-Public Use
  Company Number: GXKR2008DE01145

PATIENT
  Age: 24 Year
  Sex: Male
  Weight: 76 kg

DRUGS (2)
  1. ACETAMINOPHEN [Suspect]
     Indication: HEADACHE
     Dosage: 1000 MG, ONCE/SINGLE, ORAL
     Route: 048
  2. ASPIRIN [Suspect]
     Indication: HEADACHE
     Dosage: 1000 MG, ONCE/SINGLE, ORAL
     Route: 048

REACTIONS (4)
  - ABDOMINAL PAIN UPPER [None]
  - DRUG TOXICITY [None]
  - HAEMOLYTIC ANAEMIA [None]
  - NAUSEA [None]
